FAERS Safety Report 13415714 (Version 2)
Quarter: 2017Q2

REPORT INFORMATION
  Report Type: Spontaneous
  Country: FR (occurrence: FR)
  Receive Date: 20170406
  Receipt Date: 20170512
  Transmission Date: 20170830
  Serious: Yes (Hospitalization)
  Sender: FDA-Public Use
  Company Number: FR-JNJFOC-20170402417

PATIENT
  Age: 76 Year
  Sex: Male
  Weight: 86 kg

DRUGS (12)
  1. PRAVASTATIN. [Concomitant]
     Active Substance: PRAVASTATIN
  2. IKOREL [Concomitant]
     Active Substance: NICORANDIL
  3. DIFFU K [Concomitant]
     Active Substance: POTASSIUM CHLORIDE
  4. XARELTO [Suspect]
     Active Substance: RIVAROXABAN
     Indication: ATRIAL FIBRILLATION
     Route: 048
     Dates: start: 20170325, end: 20170328
  5. RAMIPRIL. [Concomitant]
     Active Substance: RAMIPRIL
  6. XARELTO [Suspect]
     Active Substance: RIVAROXABAN
     Indication: ATRIAL FIBRILLATION
     Route: 048
     Dates: start: 20170413, end: 20170414
  7. EPLERENONE. [Concomitant]
     Active Substance: EPLERENONE
  8. XARELTO [Suspect]
     Active Substance: RIVAROXABAN
     Indication: ATRIAL FIBRILLATION
     Route: 048
     Dates: end: 20170322
  9. BISOPROLOL [Concomitant]
     Active Substance: BISOPROLOL
  10. KARDEGIC [Concomitant]
     Active Substance: ASPIRIN LYSINE
  11. LASILIX [Concomitant]
     Active Substance: FUROSEMIDE
  12. REPAGLINIDE. [Concomitant]
     Active Substance: REPAGLINIDE

REACTIONS (4)
  - Drug level increased [Unknown]
  - Jaundice [Unknown]
  - Drug level increased [Unknown]
  - Cardiac failure [Unknown]

NARRATIVE: CASE EVENT DATE: 20170321
